FAERS Safety Report 6446990-7 (Version None)
Quarter: 2009Q4

REPORT INFORMATION
  Report Type: 
  Country: None (occurrence: None)
  Receive Date: 20091119
  Receipt Date: 20091110
  Transmission Date: 20100525
  Serious: Yes (Hospitalization, Other)
  Sender: FDA-Public Use
  Company Number: US-PFIZER INC-2009296130

PATIENT
  Age: 63 Year
  Sex: Male

DRUGS (2)
  1. BLINDED *PLACEBO [Suspect]
     Indication: NON-SMALL CELL LUNG CANCER
     Dosage: 37.5 MG, 1X/DAY
     Route: 048
     Dates: start: 20090518, end: 20090602
  2. BLINDED SUNITINIB MALATE [Suspect]
     Indication: NON-SMALL CELL LUNG CANCER
     Dosage: 37.5 MG, 1X/DAY
     Route: 048
     Dates: start: 20090518, end: 20090602

REACTIONS (5)
  - FATIGUE [None]
  - HYPOXIA [None]
  - MUSCULAR WEAKNESS [None]
  - PYREXIA [None]
  - THROMBOCYTOPENIA [None]
